FAERS Safety Report 8771309 (Version 2)
Quarter: 2012Q4

REPORT INFORMATION
  Report Type: 
  Country: NL (occurrence: NL)
  Receive Date: 20120906
  Receipt Date: 20120928
  Transmission Date: 20130627
  Serious: Yes (Other)
  Sender: FDA-Public Use
  Company Number: PHHY2012NL076927

PATIENT
  Age: 56 Year
  Sex: Male
  Weight: 84 kg

DRUGS (11)
  1. SANDOSTATINE LAR [Suspect]
     Indication: POST GASTRIC SURGERY SYNDROME
     Dosage: 20 mg once every 4 weeks
     Dates: start: 20120106
  2. ESOMEPRAZOLE [Concomitant]
     Dosage: 50 mg, UNK
  3. BUSCOPAN [Concomitant]
  4. LOPERAMIDE [Concomitant]
     Dosage: 2 mg, as needed
  5. ALFACALCIDOL [Concomitant]
  6. ACETYLSALICYLATE [Concomitant]
     Dosage: 80 mg, UNK
  7. HYDROCHLOROTHIAZIDE [Concomitant]
     Dosage: 12.5 mg, UNK
  8. BISOPROLOL FUMARATE [Concomitant]
     Dosage: 5 mg, UNK
  9. SIMVASTATIN [Concomitant]
     Dosage: 40 mg, UNK
  10. TAMSULOSIN [Concomitant]
     Dosage: 0.4 mg, UNK
  11. DUSPATAL [Concomitant]

REACTIONS (3)
  - Biliary colic [Not Recovered/Not Resolved]
  - Abdominal pain upper [Unknown]
  - Pain [Unknown]
